FAERS Safety Report 7039676-1 (Version None)
Quarter: 2010Q4

REPORT INFORMATION
  Report Type: 
  Country: None (occurrence: None)
  Receive Date: 20101012
  Receipt Date: 20101005
  Transmission Date: 20110411
  Serious: Yes (Other)
  Sender: FDA-Public Use
  Company Number: B0678961A

PATIENT
  Sex: Female

DRUGS (1)
  1. TYVERB [Suspect]
     Indication: BREAST CANCER STAGE IV
     Route: 065
     Dates: start: 20100719, end: 20100830

REACTIONS (4)
  - GRANULOMA [None]
  - HAEMORRHAGE [None]
  - SKIN TOXICITY [None]
  - ULCER [None]
